FAERS Safety Report 7670035-4 (Version None)
Quarter: 2011Q3

REPORT INFORMATION
  Report Type: 
  Country: None (occurrence: None)
  Receive Date: 20110808
  Receipt Date: 20110801
  Transmission Date: 20111222
  Serious: Yes (Hospitalization)
  Sender: FDA-Public Use
  Company Number: US-US-EMD SERONO, INC.-7074691

PATIENT
  Sex: Male

DRUGS (2)
  1. IMURAN [Concomitant]
     Indication: COLITIS ULCERATIVE
  2. REBIF [Suspect]
     Indication: MULTIPLE SCLEROSIS
     Dates: start: 20050801, end: 20110101

REACTIONS (2)
  - PNEUMONIA [None]
  - NEUTROPENIA [None]
